FAERS Safety Report 4516010-X (Version None)
Quarter: 2004Q4

REPORT INFORMATION
  Report Type: 
  Country: None (occurrence: None)
  Receive Date: 20041129
  Receipt Date: 20041115
  Transmission Date: 20050328
  Serious: Yes (Life-Threatening, Other)
  Sender: FDA-Public Use
  Company Number: 2004236398BE

PATIENT
  Age: 64 Year
  Sex: Female
  Weight: 50 kg

DRUGS (3)
  1. AROMASIN [Suspect]
     Indication: BREAST CANCER METASTATIC
     Dosage: 1 (QD), ORAL
     Route: 048
     Dates: start: 20010401, end: 20040823
  2. ERGENYL CHRONO (VALPROATE SODIUM, VALPROIC ACID) [Concomitant]
  3. TRASTUZUMAB (TRASTUZUMAB) [Concomitant]

REACTIONS (2)
  - NEUTROPENIA [None]
  - THROMBOCYTOPENIA [None]
